FAERS Safety Report 10787512 (Version 1)
Quarter: 2015Q1

REPORT INFORMATION
  Report Type: Spontaneous
  Country: US (occurrence: US)
  Receive Date: 20150212
  Receipt Date: 20150212
  Transmission Date: 20150721
  Serious: Yes (Hospitalization)
  Sender: FDA-Public Use
  Company Number: US-MERCK-1502USA002644

PATIENT
  Age: 91 Year
  Sex: Male

DRUGS (1)
  1. INVANZ [Suspect]
     Active Substance: ERTAPENEM SODIUM
     Indication: URINARY TRACT INFECTION
     Dosage: 500 MG, ONCE DAILY

REACTIONS (4)
  - Adverse event [Unknown]
  - Asthenia [Unknown]
  - Speech disorder [Unknown]
  - Hallucination [Unknown]
